FAERS Safety Report 5006686-5 (Version None)
Quarter: 2006Q2

REPORT INFORMATION
  Report Type: 
  Country: None (occurrence: None)
  Receive Date: 20060519
  Receipt Date: 20060509
  Transmission Date: 20061013
  Serious: Yes (Hospitalization)
  Sender: FDA-Public Use
  Company Number: PHBS2006AT06959

PATIENT
  Age: 37 Year
  Sex: Male

DRUGS (1)
  1. ZOMETA [Suspect]
     Indication: MULTIPLE MYELOMA
     Dosage: UNK, UNK
     Route: 065

REACTIONS (4)
  - ACTINOMYCOSIS [None]
  - OSTEOMYELITIS [None]
  - PRIMARY SEQUESTRUM [None]
  - WOUND DEHISCENCE [None]
